FAERS Safety Report 5017120-3 (Version None)
Quarter: 2006Q2

REPORT INFORMATION
  Report Type: 
  Country: None (occurrence: None)
  Receive Date: 20060602
  Receipt Date: 20060524
  Transmission Date: 20061013
  Serious: Yes (Disabling)
  Sender: FDA-Public Use
  Company Number: JP-AVENTIS-200611600JP

PATIENT
  Age: 53 Year
  Sex: Female

DRUGS (4)
  1. LANTUS [Suspect]
     Indication: DIABETES MELLITUS
     Route: 058
  2. DEPAS [Concomitant]
     Route: 048
  3. VITAMIN B-12 [Concomitant]
     Route: 048
  4. QUICK ACTING INSULIN [Concomitant]
     Route: 058

REACTIONS (3)
  - AFFECT LABILITY [None]
  - FEELING COLD [None]
  - RETINAL HAEMORRHAGE [None]
